FAERS Safety Report 6386170-7 (Version None)
Quarter: 2009Q4

REPORT INFORMATION
  Report Type: 
  Country: None (occurrence: None)
  Receive Date: 20091002
  Receipt Date: 20090105
  Transmission Date: 20100525
  Serious: No
  Sender: FDA-Public Use
  Company Number: US-ASTRAZENECA-2009UW00317

PATIENT
  Age: 66 Year
  Sex: Female
  Weight: 56.7 kg

DRUGS (7)
  1. ARIMIDEX [Suspect]
     Indication: BREAST CANCER
     Route: 048
     Dates: start: 20080401
  2. INTERFERON [Concomitant]
  3. TOPROL-XL [Concomitant]
  4. DETROL [Concomitant]
  5. TRICOR [Concomitant]
  6. LEVOTHYROXINE SODIUM [Concomitant]
  7. PEPCID [Concomitant]

REACTIONS (3)
  - BALANCE DISORDER [None]
  - FATIGUE [None]
  - NIGHT SWEATS [None]
